FAERS Safety Report 7581460-4 (Version None)
Quarter: 2011Q2

REPORT INFORMATION
  Report Type: 
  Country: None (occurrence: None)
  Receive Date: 20110629
  Receipt Date: 20110616
  Transmission Date: 20111010
  Serious: Yes (Hospitalization)
  Sender: FDA-Public Use
  Company Number: PHHY2011CH53749

PATIENT
  Age: 67 Year
  Sex: Male
  Weight: 84 kg

DRUGS (1)
  1. CERTICAN [Suspect]
     Indication: HEART TRANSPLANT
     Dosage: 3.5 MG DAILY
     Route: 048
     Dates: start: 20110201, end: 20110318

REACTIONS (6)
  - TESTICULAR SWELLING [None]
  - GENERALISED OEDEMA [None]
  - PENILE SWELLING [None]
  - WEIGHT INCREASED [None]
  - OEDEMA PERIPHERAL [None]
  - FLUID RETENTION [None]
